FAERS Safety Report 20812653 (Version 1)
Quarter: 2022Q2

REPORT INFORMATION
  Report Type: Spontaneous
  Country: DE (occurrence: DE)
  Receive Date: 20220511
  Receipt Date: 20220511
  Transmission Date: 20220721
  Serious: No
  Sender: FDA-Public Use
  Company Number: DE-ALKEM LABORATORIES LIMITED-DE-ALKEM-2022-02632

PATIENT
  Sex: Female

DRUGS (1)
  1. PREGABALIN [Suspect]
     Active Substance: PREGABALIN
     Indication: Polyneuropathy
     Dosage: UNK
     Route: 065
     Dates: start: 2012

REACTIONS (7)
  - Solar lentigo [Unknown]
  - Hypoaesthesia [Unknown]
  - Gait disturbance [Unknown]
  - Acne [Unknown]
  - Seborrhoeic keratosis [Unknown]
  - Skin discolouration [Unknown]
  - Pruritus [Unknown]
